FAERS Safety Report 6754007-X (Version None)
Quarter: 2010Q2

REPORT INFORMATION
  Report Type: 
  Country: None (occurrence: None)
  Receive Date: 20100603
  Receipt Date: 20100526
  Transmission Date: 20101027
  Serious: Yes (Other)
  Sender: FDA-Public Use
  Company Number: B0657267A

PATIENT
  Age: 40 Year
  Sex: Female

DRUGS (19)
  1. CLAMOXYL [Suspect]
     Indication: DRUG USE FOR UNKNOWN INDICATION
     Dosage: 1G THREE TIMES PER DAY
     Route: 048
     Dates: start: 20090225
  2. AMITRIPTYLINE HCL [Suspect]
     Route: 048
     Dates: start: 20020101, end: 20081101
  3. LEXOMIL [Suspect]
     Dosage: 48MG PER DAY
     Route: 048
     Dates: start: 20081116, end: 20081116
  4. RIVOTRIL [Suspect]
     Dosage: 2UNIT PER DAY
     Route: 048
     Dates: start: 20020101
  5. LYSANXIA [Suspect]
     Route: 048
     Dates: start: 20020101, end: 20081001
  6. TOPIRAMATE [Suspect]
     Route: 048
     Dates: start: 20020101, end: 20081001
  7. ZYPREXA [Suspect]
     Route: 048
     Dates: start: 20081001
  8. IMOVANE [Suspect]
     Dosage: 7.5MG PER DAY
     Route: 048
     Dates: start: 20081118, end: 20090201
  9. LARGACTIL [Suspect]
     Dosage: 20DROP THREE TIMES PER DAY
     Route: 048
     Dates: start: 20081118
  10. SERESTA [Suspect]
     Dosage: 10MG TWICE PER DAY
     Route: 048
     Dates: start: 20081118
  11. SPASFON LYOC [Suspect]
     Dosage: 80MG TWICE PER DAY
     Route: 048
     Dates: start: 20081118
  12. EFFEXOR [Suspect]
     Dosage: 37.5MG PER DAY
     Route: 048
     Dates: start: 20081120
  13. ZOLPIDEM [Suspect]
     Dosage: 10MG PER DAY
     Route: 048
     Dates: start: 20081126, end: 20081201
  14. THERALENE (ALIMEMAZINE) [Suspect]
     Dosage: 100DROP PER DAY
     Route: 048
     Dates: start: 20090115
  15. SEROPLEX [Suspect]
     Dosage: 10MG PER DAY
     Route: 048
     Dates: start: 20090213, end: 20090228
  16. AKINETON [Suspect]
     Dosage: 4MG TWICE PER DAY
     Route: 048
     Dates: start: 20090213
  17. NEULEPTIL [Suspect]
     Dosage: 50DROP PER DAY
     Route: 048
     Dates: start: 20090225
  18. GYNOPEVARYL [Concomitant]
     Route: 067
     Dates: start: 20081126, end: 20081202
  19. FLAGYL [Concomitant]
     Dosage: 500MG TWICE PER DAY
     Route: 048
     Dates: start: 20081126, end: 20081202

REACTIONS (6)
  - BLOOD PRESSURE INCREASED [None]
  - DRUG EXPOSURE DURING PREGNANCY [None]
  - HELLP SYNDROME [None]
  - INTRA-UTERINE DEATH [None]
  - PROTEINURIA [None]
  - THROMBOCYTOPENIA [None]
